FAERS Safety Report 17783543 (Version 1)
Quarter: 2020Q2

REPORT INFORMATION
  Report Type: Spontaneous
  Country: US (occurrence: US)
  Receive Date: 20200513
  Receipt Date: 20200513
  Transmission Date: 20200714
  Serious: Yes (Hospitalization)
  Sender: FDA-Public Use
  Company Number: None

PATIENT
  Age: 69 Year
  Sex: Male

DRUGS (1)
  1. OPSUMIT [Suspect]
     Active Substance: MACITENTAN
     Indication: PULMONARY ARTERIAL HYPERTENSION
     Route: 048
     Dates: start: 20160812

REACTIONS (6)
  - Pulmonary hypertension [None]
  - Pain in extremity [None]
  - Chest discomfort [None]
  - Ischaemia [None]
  - Dyspnoea [None]
  - Right ventricular failure [None]

NARRATIVE: CASE EVENT DATE: 20200511
